FAERS Safety Report 10997044 (Version 1)
Quarter: 2015Q2

REPORT INFORMATION
  Report Type: Spontaneous
  Country: US (occurrence: None)
  Receive Date: 20150407
  Receipt Date: 20150407
  Transmission Date: 20150821
  Serious: No
  Sender: FDA-Public Use
  Company Number: None

PATIENT
  Age: 62 Year
  Sex: Female

DRUGS (1)
  1. ORENCIA [Suspect]
     Active Substance: ABATACEPT
     Indication: RHEUMATOID ARTHRITIS
     Route: 058
     Dates: start: 20150318

REACTIONS (5)
  - Dizziness [None]
  - Chest discomfort [None]
  - Swollen tongue [None]
  - Joint stiffness [None]
  - Dyspnoea [None]

NARRATIVE: CASE EVENT DATE: 20150318
